FAERS Safety Report 19271141 (Version 1)
Quarter: 2021Q2

REPORT INFORMATION
  Report Type: Spontaneous
  Country: FR (occurrence: FR)
  Receive Date: 20210518
  Receipt Date: 20210518
  Transmission Date: 20210717
  Serious: Yes (Other)
  Sender: FDA-Public Use
  Company Number: FR-ROCHE-2829969

PATIENT
  Sex: Female

DRUGS (2)
  1. PREVISCAN (FRANCE) [Concomitant]
     Active Substance: FLUINDIONE
  2. PEGASYS [Suspect]
     Active Substance: PEGINTERFERON ALFA-2A
     Indication: ESSENTIAL THROMBOCYTHAEMIA
     Dosage: 90 MCG/0.5 ML
     Route: 065
     Dates: start: 2016

REACTIONS (2)
  - Blood chromogranin A increased [Unknown]
  - Off label use [Unknown]
